FAERS Safety Report 12226300 (Version 1)
Quarter: 2016Q1

REPORT INFORMATION
  Report Type: Spontaneous
  Country: US (occurrence: US)
  Receive Date: 20160331
  Receipt Date: 20160331
  Transmission Date: 20160526
  Serious: No
  Sender: FDA-Public Use
  Company Number: US-TEVA-646031USA

PATIENT
  Age: 54 Year
  Sex: Male
  Weight: 86.26 kg

DRUGS (2)
  1. FENTORA [Suspect]
     Active Substance: FENTANYL CITRATE
     Indication: CANCER PAIN
     Dosage: 800 MICROGRAM DAILY; AS NEEDED
     Route: 002
     Dates: start: 2015
  2. FENTORA [Suspect]
     Active Substance: FENTANYL CITRATE
     Indication: GASTRECTOMY

REACTIONS (3)
  - Drug effect decreased [Unknown]
  - Product quality issue [Unknown]
  - Abdominal pain upper [Unknown]

NARRATIVE: CASE EVENT DATE: 20160320
